FAERS Safety Report 12869605 (Version 1)
Quarter: 2016Q4

REPORT INFORMATION
  Report Type: Spontaneous
  Country: US (occurrence: US)
  Receive Date: 20161021
  Receipt Date: 20161021
  Transmission Date: 20170207
  Serious: No
  Sender: FDA-Public Use
  Company Number: US-BAUSCH-BL-2016-005475

PATIENT
  Age: 4 Year
  Sex: Female
  Weight: 16.34 kg

DRUGS (4)
  1. NEOMYCIN AND POLYMYXIN B SULFATES AND HYDROCORTISONE [Suspect]
     Active Substance: HYDROCORTISONE\NEOMYCIN SULFATE\POLYMYXIN B SULFATE
     Indication: TYMPANIC MEMBRANE PERFORATION
  2. AMOXICILLIN. [Concomitant]
     Active Substance: AMOXICILLIN
     Indication: EAR INFECTION
     Route: 048
     Dates: start: 20160301
  3. AMOXICILLIN. [Concomitant]
     Active Substance: AMOXICILLIN
     Indication: TYMPANIC MEMBRANE PERFORATION
  4. NEOMYCIN AND POLYMYXIN B SULFATES AND HYDROCORTISONE [Suspect]
     Active Substance: HYDROCORTISONE\NEOMYCIN SULFATE\POLYMYXIN B SULFATE
     Indication: EAR INFECTION
     Dosage: IN THE RIGHT EAR
     Route: 001
     Dates: start: 20160301

REACTIONS (1)
  - Off label use [Unknown]

NARRATIVE: CASE EVENT DATE: 20160301
